FAERS Safety Report 24973626 (Version 2)
Quarter: 2025Q2

REPORT INFORMATION
  Report Type: Spontaneous
  Country: US (occurrence: US)
  Receive Date: 20250217
  Receipt Date: 20250403
  Transmission Date: 20250716
  Serious: No
  Sender: EMD SERONO INC
  Company Number: US-Merck Healthcare KGaA-2025005301

PATIENT
  Age: 18 Year
  Sex: Male

DRUGS (1)
  1. TEPMETKO [Suspect]
     Active Substance: TEPOTINIB HYDROCHLORIDE
     Indication: Non-small cell lung cancer

REACTIONS (1)
  - Facial paresis [Unknown]
